FAERS Safety Report 22535506 (Version 1)
Quarter: 2023Q2

REPORT INFORMATION
  Report Type: Spontaneous
  Country: US (occurrence: US)
  Receive Date: 20230608
  Receipt Date: 20230608
  Transmission Date: 20230722
  Serious: Yes (Other)
  Sender: FDA-Public Use
  Company Number: US-BAXTER-2023BAX023311

PATIENT
  Age: 5 Month
  Sex: Female

DRUGS (9)
  1. DOXORUBICIN [Suspect]
     Active Substance: DOXORUBICIN
     Indication: Primitive neuroectodermal tumour
     Dosage: 30 MG/M2/DAY WITH CONTINOUS INFUSION OVER THE COURSE OF 48 H, ON DAYS 2 AND 3 OF WEEKS 1, 4, AND 13
     Route: 041
  2. CYCLOPHOSPHAMIDE [Suspect]
     Active Substance: CYCLOPHOSPHAMIDE
     Indication: Primitive neuroectodermal tumour
     Dosage: 300 MG/M2/DAY WITH CONTINUOUS INFUSION OVER THE COURSE OF 72 H, ON DAYS 2, 3, ND 4 OF WEEKS 1, 13, A
     Route: 041
  3. CYCLOPHOSPHAMIDE [Suspect]
     Active Substance: CYCLOPHOSPHAMIDE
     Dosage: 600 MG/M2 WAS ADMINISTERED ON DAY 2 OF WEEKS 7 AND 10 (4 CYCLES OF INDUCTION CHEMOTHERAPY, ACCORDING
     Route: 042
  4. DACTINOMYCIN [Suspect]
     Active Substance: DACTINOMYCIN
     Indication: Primitive neuroectodermal tumour
     Dosage: 6 MG/M2, 1 CYLICAL, 1.2 MG/M2, ON DAYS 1, 2, 3, 4, AND 5 OF WEEK 16
     Route: 042
  5. CISPLATIN [Suspect]
     Active Substance: CISPLATIN
     Indication: Primitive neuroectodermal tumour
     Dosage: 90 MG/M2 ON DAY 1 OF WEEKS 1, 4, 7, AND 10 (4 CYCLES OF INDUCTION CHEMOTHERAPY, ACCORDING TO THE DFC
     Route: 042
  6. TOPOTECAN [Suspect]
     Active Substance: TOPOTECAN HYDROCHLORIDE
     Indication: Primitive neuroectodermal tumour
     Dosage: 0.2 MG/M2 ON DAY 1 OF WEEKS 1, 2, 4, 7,13 (4 CYCLES OF INDUCTION CHEMOTHERAPY, ACCORDING TO THE DFCI
     Route: 037
  7. VINCRISTINE [Suspect]
     Active Substance: VINCRISTINE
     Indication: Primitive neuroectodermal tumour
     Dosage: 2 MG/M2, ON DAY 1 OF WEEKS 1-13 AND WEEK 16 OF THERAPY (4 CYCLES OF INDUCTION CHEMOTHERAPY, ACCORDIN
     Route: 042
  8. ACTINOMYCIN D [Suspect]
     Active Substance: DACTINOMYCIN
     Indication: Primitive neuroectodermal tumour
     Dosage: 1.2 MG/M2 ON DAYS 1, 2, 3, 4, AND 5 OF WEEK 16 (4 CYCLES OF INDUCTION CHEMOTHERAPY, ACCORDING TO THE
     Route: 042
  9. ETOPOSIDE [Suspect]
     Active Substance: ETOPOSIDE
     Indication: Primitive neuroectodermal tumour
     Dosage: 100 MG/M2, ON DAYS 1, 2, AND 3 OF WEEKS 4, 7, AND 10 (4 CYCLES OF INDUCTION CHEMOTHERAPY, ACCORDING
     Route: 042

REACTIONS (1)
  - Venoocclusive liver disease [Unknown]
